FAERS Safety Report 6167252-1 (Version None)
Quarter: 2009Q2

REPORT INFORMATION
  Report Type: 
  Country: None (occurrence: None)
  Receive Date: 20090424
  Receipt Date: 20090416
  Transmission Date: 20091009
  Serious: Yes (Congenital Anomaly)
  Sender: FDA-Public Use
  Company Number: GB-TEVA-192006ISR

PATIENT

DRUGS (1)
  1. FLUOXETINE [Suspect]
     Route: 064
     Dates: start: 20070401, end: 20070801

REACTIONS (1)
  - POSTERIOR SEGMENT OF EYE ANOMALY CONGENITAL [None]
